FAERS Safety Report 6621107-4 (Version None)
Quarter: 2010Q1

REPORT INFORMATION
  Report Type: 
  Country: None (occurrence: None)
  Receive Date: 20100309
  Receipt Date: 20100209
  Transmission Date: 20100710
  Serious: Yes (Hospitalization)
  Sender: FDA-Public Use
  Company Number: US-BAYER-201011672NA

PATIENT
  Age: 78 Year
  Sex: Female
  Weight: 98 kg

DRUGS (1)
  1. BETAPACE [Suspect]
     Indication: ATRIAL FIBRILLATION

REACTIONS (1)
  - ATRIAL FIBRILLATION [None]
